FAERS Safety Report 8030094-6 (Version None)
Quarter: 2012Q1

REPORT INFORMATION
  Report Type: 
  Country: None (occurrence: None)
  Receive Date: 20120109
  Receipt Date: 20111227
  Transmission Date: 20120608
  Serious: Yes (Death)
  Sender: FDA-Public Use
  Company Number: US-JNJFOC-20111212552

PATIENT
  Age: 57 Year
  Sex: Female

DRUGS (5)
  1. LORAZEPAM [Suspect]
     Indication: ILL-DEFINED DISORDER
     Route: 065
  2. ACETAMINOPHEN/HYDROCODONE BITARTRATE [Suspect]
     Indication: ILL-DEFINED DISORDER
     Route: 065
  3. PARACETAMOL/ DIPHENHYDRAMINE [Suspect]
     Indication: ILL-DEFINED DISORDER
     Route: 048
  4. ALPRAZOLAM [Suspect]
     Indication: ILL-DEFINED DISORDER
     Route: 065
  5. CODEINE [Suspect]
     Indication: ILL-DEFINED DISORDER
     Route: 065

REACTIONS (3)
  - TOXICITY TO VARIOUS AGENTS [None]
  - CARDIO-RESPIRATORY ARREST [None]
  - COMPLETED SUICIDE [None]
